FAERS Safety Report 10235974 (Version 2)
Quarter: 2014Q2

REPORT INFORMATION
  Report Type: Spontaneous
  Country: GB (occurrence: GB)
  Receive Date: 20140613
  Receipt Date: 20140613
  Transmission Date: 20141212
  Serious: Yes (Other)
  Sender: FDA-Public Use
  Company Number: GB-ABBVIE-14P-167-1237381-00

PATIENT
  Sex: Female

DRUGS (3)
  1. HUMIRA [Suspect]
     Indication: PSORIATIC ARTHROPATHY
     Route: 058
     Dates: start: 20130509, end: 20140506
  2. TRAMACET [Concomitant]
     Indication: PAIN
     Route: 048
  3. AMITRIPTYLINE [Concomitant]
     Indication: PAIN
     Dosage: NOCTE
     Route: 048

REACTIONS (1)
  - Abortion spontaneous [Unknown]
